FAERS Safety Report 4756083-2 (Version None)
Quarter: 2005Q3

REPORT INFORMATION
  Report Type: 
  Country: None (occurrence: None)
  Receive Date: 20050826
  Receipt Date: 20041221
  Transmission Date: 20060218
  Serious: Yes (Hospitalization, Other)
  Sender: FDA-Public Use
  Company Number: USA-2004-0018108

PATIENT
  Age: 15 Year
  Sex: Male

DRUGS (4)
  1. OXYCONTIN [Suspect]
  2. MORPHINE SULFATE [Suspect]
  3. RITALIN [Suspect]
  4. MARIJUANA (CANNABIS) [Suspect]

REACTIONS (2)
  - DRUG ABUSER [None]
  - MULTIPLE DRUG OVERDOSE [None]
